FAERS Safety Report 5052937-0 (Version None)
Quarter: 2006Q3

REPORT INFORMATION
  Report Type: 
  Country: None (occurrence: None)
  Receive Date: 20060712
  Receipt Date: 20060630
  Transmission Date: 20061208
  Serious: Yes (Hospitalization)
  Sender: FDA-Public Use
  Company Number: 2006-02654

PATIENT
  Age: 74 Year
  Sex: Male

DRUGS (2)
  1. DILACOR XR [Suspect]
     Indication: ATRIAL FIBRILLATION
     Dosage: SEE IMAGE
     Route: 048
  2. AMIODARONE HCL [Concomitant]

REACTIONS (1)
  - GASTROINTESTINAL HYPOMOTILITY [None]
